FAERS Safety Report 5530744-X (Version None)
Quarter: 2007Q4

REPORT INFORMATION
  Report Type: 
  Country: None (occurrence: None)
  Receive Date: 20071128
  Receipt Date: 20071128
  Transmission Date: 20080405
  Serious: Yes (Hospitalization)
  Sender: FDA-Public Use
  Company Number: None

PATIENT
  Sex: Female
  Weight: 115.68 kg

DRUGS (4)
  1. CISPLATIN [Suspect]
     Dosage: 100 MG
  2. DOXORUBICIN HYDROCHLORIDE [Suspect]
     Dosage: 90 MG
  3. G-CSF (FILGRASTATIM, AMGEN) [Suspect]
     Dosage: 6 MG
  4. TAXOL [Suspect]
     Dosage: 320 MG

REACTIONS (7)
  - BACTERIAL INFECTION [None]
  - BLOOD CREATININE INCREASED [None]
  - BLOOD CULTURE POSITIVE [None]
  - CATHETER SITE DISCHARGE [None]
  - DEHYDRATION [None]
  - DYSPNOEA EXERTIONAL [None]
  - FEBRILE NEUTROPENIA [None]
